FAERS Safety Report 13039260 (Version 3)
Quarter: 2017Q1

REPORT INFORMATION
  Report Type: Spontaneous
  Country: DE (occurrence: DE)
  Receive Date: 20161219
  Receipt Date: 20170118
  Transmission Date: 20170428
  Serious: Yes (Death, Other)
  Sender: FDA-Public Use
  Company Number: PHHY2016DE164075

PATIENT
  Age: 62 Year
  Sex: Female
  Weight: 76 kg

DRUGS (12)
  1. GLUCOSE [Concomitant]
     Active Substance: DEXTROSE
     Indication: PRODUCT USED FOR UNKNOWN INDICATION
     Dosage: 5 %, UNK
     Route: 065
     Dates: start: 200909
  2. NILOTINIB [Suspect]
     Active Substance: NILOTINIB
     Indication: CHRONIC MYELOID LEUKAEMIA
     Route: 065
  3. PROPOFOL MCT/LCT FRESENIUS [Concomitant]
     Indication: NERVOUSNESS
     Dosage: 1000 MG, (PER 50 ML/H)
     Route: 065
     Dates: start: 200909
  4. CIPROBAY [Concomitant]
     Active Substance: CIPROFLOXACIN
     Indication: PRODUCT USED FOR UNKNOWN INDICATION
     Dosage: 400 MG/200
     Route: 042
     Dates: start: 200909
  5. INSUMAN RAPID [Concomitant]
     Active Substance: INSULIN HUMAN
     Indication: DIABETES MELLITUS
     Dosage: 50 OT, (PER 50 ML/H)
     Route: 065
     Dates: start: 200909
  6. TAZOBAC [Concomitant]
     Active Substance: PIPERACILLIN SODIUM\TAZOBACTAM SODIUM
     Indication: PRODUCT USED FOR UNKNOWN INDICATION
     Dosage: 4.5/50
     Route: 041
     Dates: start: 200909
  7. IMATINIB [Suspect]
     Active Substance: IMATINIB
     Indication: CHRONIC MYELOID LEUKAEMIA
     Dosage: 400 MG, QD
     Route: 048
     Dates: start: 200609, end: 200903
  8. HYDROXYUREA. [Concomitant]
     Active Substance: HYDROXYUREA
     Indication: CHRONIC MYELOID LEUKAEMIA
     Dosage: 400 MG, QD
     Route: 048
     Dates: start: 200609, end: 200903
  9. FRESUBIN [Concomitant]
     Active Substance: AMINO ACIDS\DEXTROSE\ELECTROLYTES NOS\SOYBEAN OIL\VITAMINS
     Indication: PRODUCT USED FOR UNKNOWN INDICATION
     Dosage: UNK
     Route: 065
     Dates: start: 200909
  10. OLICLINOMEL [Concomitant]
     Active Substance: AMINO ACIDS\DEXTROSE\ELECTROLYTES NOS\SOYBEAN OIL
     Indication: PRODUCT USED FOR UNKNOWN INDICATION
     Dosage: UNK
     Route: 042
     Dates: start: 200909
  11. SUFENTA [Concomitant]
     Active Substance: SUFENTANIL CITRATE
     Indication: PAIN
     Dosage: 250 UG/50 NACL (9 ML/H)
     Route: 065
     Dates: start: 200909
  12. ACICLOVIR [Concomitant]
     Active Substance: ACYCLOVIR
     Indication: PRODUCT USED FOR UNKNOWN INDICATION
     Dosage: 500 MG/100
     Route: 042
     Dates: start: 200909

REACTIONS (5)
  - Respiratory failure [Fatal]
  - Drug resistance [Unknown]
  - Blast crisis in myelogenous leukaemia [Fatal]
  - Leukaemic infiltration [Unknown]
  - Pneumonia [Fatal]

NARRATIVE: CASE EVENT DATE: 20090805
